FAERS Safety Report 6097871-2 (Version None)
Quarter: 2009Q1

REPORT INFORMATION
  Report Type: 
  Country: None (occurrence: None)
  Receive Date: 20090225
  Receipt Date: 20090216
  Transmission Date: 20090719
  Serious: Yes (Other)
  Sender: FDA-Public Use
  Company Number: SPV1-2009-00195

PATIENT
  Age: 39 Year
  Sex: Female
  Weight: 108.8 kg

DRUGS (7)
  1. ADDERALL 10 [Suspect]
     Dosage: 30 MG, 1X/DAY; QD(1 CAPSULE IN AM), 15 MG, 1X/DAY; QD(1 CAPSULE IN PM)
     Dates: start: 20070517, end: 20090206
  2. ADDERALL 10 [Suspect]
     Dosage: 30 MG, 1X/DAY; QD(1 CAPSULE IN AM), 15 MG, 1X/DAY; QD(1 CAPSULE IN PM)
     Dates: start: 20070517, end: 20090206
  3. METFORMIN HCL [Concomitant]
  4. CITALOPRAM HYDROBROMIDE [Concomitant]
  5. SYNTHROID [Concomitant]
  6. AERIUS (EBASTINE) [Concomitant]
  7. ASPIRIN [Concomitant]

REACTIONS (7)
  - CONDITION AGGRAVATED [None]
  - NASAL SEPTUM PERFORATION [None]
  - OVERDOSE [None]
  - RAYNAUD'S PHENOMENON [None]
  - SENSATION OF HEAVINESS [None]
  - SOFT TISSUE DISORDER [None]
  - VASCULITIS [None]
